FAERS Safety Report 6257424-X (Version None)
Quarter: 2009Q3

REPORT INFORMATION
  Report Type: 
  Country: None (occurrence: None)
  Receive Date: 20090706
  Receipt Date: 20090622
  Transmission Date: 20100115
  Serious: Yes (Hospitalization, Disabling, Other)
  Sender: FDA-Public Use
  Company Number: US-MERCK-0905USA02289

PATIENT
  Age: 82 Year
  Sex: Female

DRUGS (3)
  1. FOSAMAX [Suspect]
     Indication: OSTEOPOROSIS
     Route: 048
     Dates: end: 20090201
  2. LIPITOR [Concomitant]
     Route: 065
  3. ASPIRIN [Concomitant]
     Route: 065

REACTIONS (5)
  - AGEUSIA [None]
  - HYPOAESTHESIA [None]
  - JAW FRACTURE [None]
  - OSTEONECROSIS [None]
  - SIALOADENITIS [None]
